FAERS Safety Report 8048402-9 (Version None)
Quarter: 2012Q1

REPORT INFORMATION
  Report Type: 
  Country: None (occurrence: None)
  Receive Date: 20120117
  Receipt Date: 20120111
  Transmission Date: 20120608
  Serious: Yes (Other)
  Sender: FDA-Public Use
  Company Number: US-PFIZER INC-2011216837

PATIENT
  Sex: Female

DRUGS (7)
  1. CHANTIX [Suspect]
     Indication: SMOKING CESSATION THERAPY
     Dosage: UNK
     Dates: start: 20070601, end: 20070801
  2. DIGOXIN [Concomitant]
     Indication: CARDIAC FAILURE CONGESTIVE
     Dosage: UNK
     Dates: start: 20010101
  3. CHANTIX [Suspect]
     Dosage: UNK
     Dates: start: 20080501, end: 20080701
  4. CHANTIX [Suspect]
     Dosage: UNK
     Dates: start: 20081001, end: 20081201
  5. LASIX [Concomitant]
     Indication: HYPERTENSION
     Dosage: UNK
     Dates: start: 20010101
  6. METOPROLOL [Concomitant]
     Indication: HYPERTENSION
     Dosage: UNK
     Dates: start: 20010101, end: 20100101
  7. CHANTIX [Suspect]
     Dosage: UNK
     Dates: start: 20080201, end: 20080301

REACTIONS (7)
  - ANXIETY [None]
  - INTENTIONAL OVERDOSE [None]
  - SUICIDE ATTEMPT [None]
  - SUICIDAL IDEATION [None]
  - ANGER [None]
  - DEPRESSION [None]
  - AGGRESSION [None]
